FAERS Safety Report 8346708-7 (Version None)
Quarter: 2012Q2

REPORT INFORMATION
  Report Type: 
  Country: None (occurrence: None)
  Receive Date: 20120509
  Receipt Date: 20120430
  Transmission Date: 20120825
  Serious: Yes (Other)
  Sender: FDA-Public Use
  Company Number: DE-ASTRAZENECA-2012SE28823

PATIENT
  Sex: Male

DRUGS (4)
  1. ZOLADEX [Suspect]
     Route: 058
     Dates: start: 20080101, end: 20110101
  2. CORTISONE ACETATE [Concomitant]
     Indication: ANKYLOSING SPONDYLITIS
  3. ANTIHYPERTENSIVES [Concomitant]
  4. GASTRIC ACID INHIBITOR [Concomitant]

REACTIONS (3)
  - THYROID HAEMORRHAGE [None]
  - HYPOAESTHESIA ORAL [None]
  - DYSPHAGIA [None]
